FAERS Safety Report 24243292 (Version 2)
Quarter: 2024Q3

REPORT INFORMATION
  Report Type: Spontaneous
  Country: AT (occurrence: AT)
  Receive Date: 20240823
  Receipt Date: 20240906
  Transmission Date: 20241017
  Serious: Yes (Other)
  Sender: JAZZ
  Company Number: AT-JAZZ PHARMACEUTICALS-2024-AT-012967

PATIENT

DRUGS (1)
  1. VYXEOS [Suspect]
     Active Substance: CYTARABINE\DAUNORUBICIN
     Indication: Acute myeloid leukaemia
     Dosage: DAY 1/3/5

REACTIONS (2)
  - Blast cell count increased [Unknown]
  - Therapy non-responder [Unknown]
